FAERS Safety Report 9084585 (Version 1)
Quarter: 2013Q1

REPORT INFORMATION
  Report Type: Spontaneous
  Country: AU (occurrence: AU)
  Receive Date: 20130131
  Receipt Date: 20130131
  Transmission Date: 20140127
  Serious: Yes (Hospitalization)
  Sender: FDA-Public Use
  Company Number: AU-AMGEN-AUSSP2012081735

PATIENT
  Age: 75 Year
  Sex: Male

DRUGS (12)
  1. XGEVA [Suspect]
     Indication: HYPERCALCAEMIA
     Dosage: UNK
     Dates: start: 20121024
  2. CANDESARTAN [Concomitant]
     Dosage: 32 MG, MANE
  3. AMLODIPINE [Concomitant]
     Dosage: 2.5 MG, MANE
  4. ROSUVASTATIN [Concomitant]
     Dosage: 20 MG, QHS
  5. FENTANYL [Concomitant]
     Dosage: 12 MUG/HR, EVERY 3 DAYS
  6. TAMOXIFEN [Concomitant]
     Dosage: 20 MG, MANE
  7. CLOPIDOGREL [Concomitant]
     Dosage: 75 MG, MANE
  8. PANTOPRAZOLE [Concomitant]
     Dosage: 40 MG, BID
  9. ALLOPURINOL [Concomitant]
     Dosage: 200 MG, MANE
  10. METOCLOPRAMIDE [Concomitant]
     Dosage: 10 MG, AS NECESSARY
  11. DOCUSATE W/SENNA [Concomitant]
     Dosage: 50 MG+ 8MG 2 TAB, BID
  12. PARACETAMOL [Concomitant]
     Dosage: 1330 MG, TID

REACTIONS (1)
  - Hypocalcaemia [Not Recovered/Not Resolved]
